FAERS Safety Report 5470716-7 (Version None)
Quarter: 2007Q3

REPORT INFORMATION
  Report Type: 
  Country: None (occurrence: None)
  Receive Date: 20070928
  Receipt Date: 20070924
  Transmission Date: 20080115
  Serious: Yes (Hospitalization, Other)
  Sender: FDA-Public Use
  Company Number: GB-AVENTIS-200715886GDDC

PATIENT
  Age: 77 Year
  Sex: Female

DRUGS (22)
  1. LANTUS [Suspect]
     Route: 058
     Dates: start: 20070101
  2. AUTOPEN INSULIN INJECTION PEN [Suspect]
  3. SALBUTAMOL [Concomitant]
  4. ASTRIX [Concomitant]
  5. IRBESARTAN AND HYDROCHLOROTHIAZIDE [Concomitant]
     Dosage: DOSE: 300/12.5
  6. COUMADIN [Concomitant]
  7. DURIDE                             /00586303/ [Concomitant]
  8. EPIPEN                             /00003901/ [Concomitant]
  9. FELODIPINE [Concomitant]
  10. FENAC                              /00372302/ [Concomitant]
  11. INTAL [Concomitant]
  12. LANOXIN [Concomitant]
     Dosage: DOSE QUANTITY: 62.5
  13. LIPITOR [Concomitant]
  14. MAGMIN [Concomitant]
  15. MINAX [Concomitant]
  16. NITROLINGUAL PUMPSPRAY [Concomitant]
  17. NOVORAPID [Concomitant]
  18. PANAMAX [Concomitant]
  19. PERINDOPRIL ERBUMINE [Concomitant]
  20. PANTOPRAZOLE SODIUM [Concomitant]
  21. STILNOX                            /00914901/ [Concomitant]
  22. TEMAZE [Concomitant]

REACTIONS (2)
  - APHASIA [None]
  - CEREBROVASCULAR ACCIDENT [None]
